FAERS Safety Report 9181244 (Version 2)
Quarter: 2013Q1

REPORT INFORMATION
  Report Type: Spontaneous
  Country: US (occurrence: US)
  Receive Date: 20130322
  Receipt Date: 20130322
  Transmission Date: 20140127
  Serious: No
  Sender: FDA-Public Use
  Company Number: US-MYLANLABS-2012S1023442

PATIENT
  Age: 65 Year
  Sex: Female

DRUGS (11)
  1. EMSAM [Suspect]
     Indication: DEPRESSION
     Dosage: QD
     Route: 062
     Dates: start: 201204
  2. EMSAM [Suspect]
     Indication: BIPOLAR DISORDER
     Dosage: QD
     Route: 062
     Dates: start: 201204
  3. EMSAM [Suspect]
     Indication: DEPRESSION
     Dosage: QD
     Route: 062
     Dates: start: 201210, end: 201212
  4. EMSAM [Suspect]
     Indication: BIPOLAR DISORDER
     Dosage: QD
     Route: 062
     Dates: start: 201210, end: 201212
  5. PRAVASTATIN [Concomitant]
     Indication: BLOOD PRESSURE INCREASED
  6. SYNTHROID [Concomitant]
     Indication: HYPOTHYROIDISM
  7. XANAX [Concomitant]
  8. LISINOPRIL [Concomitant]
  9. TOPAMAX [Concomitant]
  10. FISH OIL [Concomitant]
  11. ASPIRIN [Concomitant]

REACTIONS (7)
  - Application site urticaria [Recovered/Resolved]
  - Application site paraesthesia [Recovered/Resolved]
  - Application site pruritus [Recovered/Resolved]
  - Application site erythema [Recovered/Resolved]
  - Application site discolouration [Recovering/Resolving]
  - Application site exfoliation [Recovered/Resolved]
  - Pruritus generalised [Recovered/Resolved]
